FAERS Safety Report 6548777-3 (Version None)
Quarter: 2010Q1

REPORT INFORMATION
  Report Type: 
  Country: None (occurrence: None)
  Receive Date: 20100124
  Receipt Date: 20091119
  Transmission Date: 20100710
  Serious: No
  Sender: FDA-Public Use
  Company Number: US-ALLERGAN-0916201US

PATIENT
  Sex: Female

DRUGS (3)
  1. RESTASIS [Suspect]
     Indication: DRY EYE
  2. GENTEAL                            /00445101/ [Concomitant]
     Indication: DRY EYE
     Route: 047
  3. SYSTANE [Concomitant]
     Indication: DRY EYE

REACTIONS (2)
  - DRY EYE [None]
  - OCULAR HYPERAEMIA [None]
